FAERS Safety Report 9743673 (Version 2)
Quarter: 2013Q4

REPORT INFORMATION
  Report Type: Spontaneous
  Country: US (occurrence: US)
  Receive Date: 20131210
  Receipt Date: 20131227
  Transmission Date: 20140711
  Serious: No
  Sender: FDA-Public Use
  Company Number: US-TEVA-448842USA

PATIENT
  Age: 14 Year
  Sex: Female

DRUGS (1)
  1. NUVIGIL [Suspect]
     Indication: CATAPLEXY

REACTIONS (1)
  - Drug prescribing error [Unknown]
